FAERS Safety Report 7082492-5 (Version None)
Quarter: 2010Q4

REPORT INFORMATION
  Report Type: 
  Country: None (occurrence: None)
  Receive Date: 20101026
  Receipt Date: 20101015
  Transmission Date: 20110411
  Serious: Yes (Other)
  Sender: FDA-Public Use
  Company Number: 20109448

PATIENT
  Age: 62 Year
  Sex: Female

DRUGS (3)
  1. LIORESAL [Suspect]
     Indication: MUSCLE SPASTICITY
     Dosage: INTRATHECAL
     Route: 037
  2. PRIALT [Concomitant]
  3. DILAUDID [Concomitant]

REACTIONS (10)
  - DEHYDRATION [None]
  - DIZZINESS [None]
  - DRY MOUTH [None]
  - DRY SKIN [None]
  - HEADACHE [None]
  - HYPERTHYROIDISM [None]
  - PARAESTHESIA [None]
  - PYREXIA [None]
  - THROAT IRRITATION [None]
  - TINNITUS [None]
